FAERS Safety Report 16735117 (Version 1)
Quarter: 2019Q3

REPORT INFORMATION
  Report Type: Report from Study
  Country: HK (occurrence: CN)
  Receive Date: 20190823
  Receipt Date: 20190823
  Transmission Date: 20191005
  Serious: Yes (Death, Hospitalization, Other)
  Sender: FDA-Public Use
  Company Number: HK-PFIZER INC-2019359269

PATIENT
  Age: 56 Year
  Sex: Female
  Weight: 57.9 kg

DRUGS (1)
  1. LORLATINIB [Suspect]
     Active Substance: LORLATINIB
     Indication: NON-SMALL CELL LUNG CANCER
     Dosage: 100 MG, DAILY
     Route: 048
     Dates: start: 20190316

REACTIONS (2)
  - Death [Fatal]
  - Gastrointestinal obstruction [Unknown]

NARRATIVE: CASE EVENT DATE: 20190801
